FAERS Safety Report 6597098-1 (Version None)
Quarter: 2010Q1

REPORT INFORMATION
  Report Type: 
  Country: None (occurrence: None)
  Receive Date: 20100219
  Receipt Date: 20100219
  Transmission Date: 20100710
  Serious: Yes (Disabling)
  Sender: FDA-Public Use
  Company Number: None

PATIENT
  Age: 18 Year
  Sex: Male
  Weight: 56.4 kg

DRUGS (1)
  1. MONODOX [Suspect]
     Indication: ACNE
     Dosage: 100MG DAILY 047
     Dates: start: 20090301, end: 20090601

REACTIONS (1)
  - CROHN'S DISEASE [None]
